FAERS Safety Report 9363297 (Version 1)
Quarter: 2013Q2

REPORT INFORMATION
  Report Type: Spontaneous
  Country: US (occurrence: US)
  Receive Date: 20130624
  Receipt Date: 20130624
  Transmission Date: 20140414
  Serious: Yes (Death)
  Sender: FDA-Public Use
  Company Number: US-JNJFOC-20130608429

PATIENT
  Sex: 0

DRUGS (2)
  1. DOXORUBICIN HYDROCHLORIDE [Suspect]
     Indication: ACUTE LYMPHOCYTIC LEUKAEMIA
     Dosage: UP TO 15 MINUTES
     Route: 040
  2. DEXRAZOXANE [Suspect]
     Indication: CARDIOVASCULAR EVENT PROPHYLAXIS
     Dosage: UP TO 15 MINUTES BEFORE EACH DOSE OF DOXORUBICIN
     Route: 040

REACTIONS (2)
  - Death [Fatal]
  - Off label use [Unknown]
